FAERS Safety Report 9075123 (Version 1)
Quarter: 2013Q1

REPORT INFORMATION
  Report Type: Report from Study
  Country: US (occurrence: US)
  Receive Date: 20130129
  Receipt Date: 20130129
  Transmission Date: 20140127
  Serious: No
  Sender: FDA-Public Use
  Company Number: US-ABBOTT-12P-163-0921903-00

PATIENT
  Sex: Female
  Weight: 76.73 kg

DRUGS (6)
  1. HUMIRA 40 MG/0.8 ML PEN [Suspect]
     Indication: RHEUMATOID ARTHRITIS
     Dates: start: 2009, end: 2010
  2. HUMIRA 40 MG/0.8 ML PEN [Suspect]
     Dates: start: 201203
  3. PLAQUENIL [Concomitant]
     Indication: RHEUMATOID ARTHRITIS
  4. UNKNOWN MEDICATION [Concomitant]
     Indication: HYPERTENSION
  5. UNKNOWN MEDICATION [Concomitant]
     Indication: THYROID DISORDER
  6. UNKNOWN MEDICATION [Concomitant]
     Indication: HYPERSENSITIVITY

REACTIONS (5)
  - Wound [Recovered/Resolved]
  - Rheumatoid arthritis [Not Recovered/Not Resolved]
  - Rheumatoid arthritis [Not Recovered/Not Resolved]
  - Animal bite [Recovered/Resolved]
  - Pain [Not Recovered/Not Resolved]
